FAERS Safety Report 8935008 (Version 2)
Quarter: 2013Q1

REPORT INFORMATION
  Report Type: Spontaneous
  Country: FR (occurrence: FR)
  Receive Date: 20121129
  Receipt Date: 20130102
  Transmission Date: 20140127
  Serious: Yes (Death)
  Sender: FDA-Public Use
  Company Number: FR-B.I. PHARMACEUTICALS,INC./RIDGEFIELD-2012-FF-01766FF

PATIENT
  Age: 80 Year
  Sex: Male
  Weight: 86 kg

DRUGS (6)
  1. PRADAXA [Suspect]
     Indication: THROMBOSIS PROPHYLAXIS
     Dosage: 220 MG
     Route: 048
     Dates: start: 20121029, end: 20121114
  2. AMIODARONE [Concomitant]
  3. EXFORGE [Concomitant]
  4. LASILIX [Concomitant]
  5. KARDEGIC [Concomitant]
  6. LEVOTHYROX [Concomitant]

REACTIONS (1)
  - Sudden death [Fatal]
